FAERS Safety Report 9791474 (Version 1)
Quarter: 2014Q1

REPORT INFORMATION
  Report Type: Spontaneous
  Country: ES (occurrence: ES)
  Receive Date: 20140101
  Receipt Date: 20140101
  Transmission Date: 20141002
  Serious: Yes (Death, Other)
  Sender: FDA-Public Use
  Company Number: PHHY2013ES153466

PATIENT
  Age: 25 Year
  Sex: Male

DRUGS (3)
  1. IMATINIB [Suspect]
     Indication: CHRONIC MYELOID LEUKAEMIA
  2. DASATINIB [Suspect]
     Indication: CHRONIC MYELOID LEUKAEMIA
  3. NILOTINIB [Suspect]
     Indication: CHRONIC MYELOID LEUKAEMIA

REACTIONS (5)
  - Chronic myeloid leukaemia [Fatal]
  - Malignant neoplasm progression [Fatal]
  - Blast crisis in myelogenous leukaemia [Unknown]
  - Drug resistance [Unknown]
  - Drug intolerance [Unknown]
